FAERS Safety Report 18212839 (Version 13)
Quarter: 2022Q3

REPORT INFORMATION
  Report Type: Spontaneous
  Country: US (occurrence: US)
  Receive Date: 20200831
  Receipt Date: 20220804
  Transmission Date: 20221027
  Serious: Yes (Other)
  Sender: FDA-Public Use
  Company Number: US-PFIZER INC-2020327933

PATIENT
  Age: 73 Year
  Sex: Female

DRUGS (5)
  1. SUTENT [Suspect]
     Active Substance: SUNITINIB MALATE
     Indication: Gastrointestinal stromal tumour
     Dosage: 37.5 MG
     Route: 048
  2. SUTENT [Suspect]
     Active Substance: SUNITINIB MALATE
     Dosage: 12.5 MG, TWICE DAILY ALTERNATING 12.5 MG ONCE DAILY (37.5 MG IN 2 DAYS)
     Route: 048
  3. SUTENT [Suspect]
     Active Substance: SUNITINIB MALATE
     Dosage: 25 MG, 12.5 MG TWICE DAILY ALTERNATING 12.5 MG ONCE DAILY (37.5 MG IN 2 DAYS)
     Route: 048
  4. SUTENT [Suspect]
     Active Substance: SUNITINIB MALATE
     Dosage: 25 MG, DAILY
     Route: 048
  5. SUTENT [Suspect]
     Active Substance: SUNITINIB MALATE
     Dosage: 12.5 MG, DAILY
     Route: 048

REACTIONS (5)
  - Neuropathy peripheral [Unknown]
  - Gait disturbance [Unknown]
  - Dyspnoea [Unknown]
  - Product use issue [Unknown]
  - Product use issue [Unknown]
